FAERS Safety Report 6260521-6 (Version None)
Quarter: 2009Q3

REPORT INFORMATION
  Report Type: 
  Country: None (occurrence: None)
  Receive Date: 20090708
  Receipt Date: 20090625
  Transmission Date: 20100115
  Serious: Yes (Hospitalization)
  Sender: FDA-Public Use
  Company Number: US-KINGPHARMUSA00001-K200900756

PATIENT
  Age: 46 Year
  Sex: Female

DRUGS (4)
  1. SEPTRA [Suspect]
     Indication: CELLULITIS
     Dosage: 160/800 MG, BID
     Route: 048
     Dates: start: 20090501, end: 20090501
  2. LIPITOR [Suspect]
     Indication: BLOOD CHOLESTEROL INCREASED
     Dosage: 10 MG, QD
     Route: 048
     Dates: start: 20040101, end: 20090501
  3. VALPROIC ACID [Concomitant]
     Dosage: UNK
     Route: 048
     Dates: start: 20040101, end: 20090501
  4. VALPROIC ACID [Concomitant]
     Dosage: UNK
     Route: 048
     Dates: start: 20090601

REACTIONS (7)
  - ALANINE AMINOTRANSFERASE INCREASED [None]
  - ASPARTATE AMINOTRANSFERASE INCREASED [None]
  - BLOOD CREATINE PHOSPHOKINASE INCREASED [None]
  - CHEST PAIN [None]
  - MYALGIA [None]
  - PYREXIA [None]
  - RHABDOMYOLYSIS [None]
